FAERS Safety Report 9415784 (Version 4)
Quarter: 2014Q1

REPORT INFORMATION
  Report Type: Spontaneous
  Country: IE (occurrence: IE)
  Receive Date: 20130724
  Receipt Date: 20140124
  Transmission Date: 20141002
  Serious: Yes (Other)
  Sender: FDA-Public Use
  Company Number: IE-MERCK-1307GBR011497

PATIENT
  Age: 60 Year
  Sex: Female

DRUGS (4)
  1. JANUVIA [Suspect]
     Indication: TYPE 2 DIABETES MELLITUS
     Dosage: 100 MG, QD
     Route: 048
     Dates: start: 20130430, end: 20130702
  2. DIAMICRON [Concomitant]
     Dosage: UNK
     Dates: start: 201303
  3. METFORMIN [Concomitant]
  4. INSULIN [Concomitant]
     Dosage: ONCE DAILY IN THE MORNING

REACTIONS (1)
  - Pancreatic carcinoma [Not Recovered/Not Resolved]
